FAERS Safety Report 11167569 (Version 1)
Quarter: 2015Q2

REPORT INFORMATION
  Report Type: Spontaneous
  Country: US (occurrence: None)
  Receive Date: 20150604
  Receipt Date: 20150604
  Transmission Date: 20150821
  Serious: Yes (Disabling)
  Sender: FDA-Public Use
  Company Number: None

PATIENT
  Age: 77 Year
  Sex: Female
  Weight: 54.43 kg

DRUGS (15)
  1. SENNA S [Concomitant]
     Active Substance: DOCUSATE SODIUM\SENNA LEAF
  2. ALPRAZALAM [Concomitant]
  3. LISINOPRIL. [Concomitant]
     Active Substance: LISINOPRIL
  4. TYLENOL [Concomitant]
     Active Substance: ACETAMINOPHEN
  5. VITAMIN D [Concomitant]
     Active Substance: CHOLECALCIFEROL
  6. IRON [Concomitant]
     Active Substance: IRON
  7. FISH OIL [Concomitant]
     Active Substance: FISH OIL
  8. TRAMADOL [Concomitant]
     Active Substance: TRAMADOL
  9. WARFARIN [Concomitant]
     Active Substance: WARFARIN
  10. DIGOXIN. [Concomitant]
     Active Substance: DIGOXIN
  11. ASA [Concomitant]
     Active Substance: ASPIRIN
  12. ALENDRONATE 70 MG [Suspect]
     Active Substance: ALENDRONATE SODIUM
     Indication: OSTEOPENIA
     Dosage: 1 PILL
     Route: 048
     Dates: start: 20150217, end: 20150317
  13. PREDNISONE. [Concomitant]
     Active Substance: PREDNISONE
  14. FOSAMAX PLUS D [Suspect]
     Active Substance: ALENDRONATE SODIUM\CHOLECALCIFEROL
  15. MULTIVIT [Concomitant]
     Active Substance: VITAMINS

REACTIONS (2)
  - Musculoskeletal pain [None]
  - Pain in extremity [None]

NARRATIVE: CASE EVENT DATE: 20150224
